FAERS Safety Report 11216620 (Version 3)
Quarter: 2016Q1

REPORT INFORMATION
  Report Type: Report from Study
  Country: US (occurrence: US)
  Receive Date: 20150624
  Receipt Date: 20160225
  Transmission Date: 20160525
  Serious: Yes (Disabling, Other)
  Sender: FDA-Public Use
  Company Number: US-ASTRAZENECA-2015SE23474

PATIENT
  Age: 48 Year
  Sex: Female

DRUGS (1)
  1. OLAPARIB [Suspect]
     Active Substance: OLAPARIB
     Indication: OVARIAN CANCER
     Route: 048

REACTIONS (5)
  - Nausea [Not Recovered/Not Resolved]
  - Flatulence [Unknown]
  - Gastric disorder [Unknown]
  - Blood magnesium decreased [Recovering/Resolving]
  - Malignant neoplasm progression [Unknown]
